FAERS Safety Report 7001427-4 (Version None)
Quarter: 2010Q3

REPORT INFORMATION
  Report Type: 
  Country: None (occurrence: None)
  Receive Date: 20100920
  Receipt Date: 20091231
  Transmission Date: 20110219
  Serious: No
  Sender: FDA-Public Use
  Company Number: US-ASTRAZENECA-2010SE00037

PATIENT
  Age: 19 Year
  Sex: Male

DRUGS (1)
  1. SEROQUEL XR [Suspect]
     Indication: ANGER
     Route: 048
     Dates: start: 20090801, end: 20091201

REACTIONS (1)
  - ANGER [None]
